FAERS Safety Report 8810311 (Version 2)
Quarter: 2012Q4

REPORT INFORMATION
  Report Type: Report from Study
  Country: BE (occurrence: BE)
  Receive Date: 20120926
  Receipt Date: 20121011
  Transmission Date: 20130627
  Serious: Yes (Life-Threatening, Hospitalization)
  Sender: FDA-Public Use
  Company Number: BE-ABBOTT-12P-013-0954305-00

PATIENT
  Age: 45 Year
  Sex: Female
  Weight: 49 kg

DRUGS (11)
  1. ALFACALCIDOL [Suspect]
     Indication: HYPOCALCAEMIA
     Dates: start: 201207, end: 20120809
  2. OXYCONTIN [Concomitant]
     Indication: PRODUCT USED FOR UNKNOWN INDICATION
  3. ACETYLSALICYL ACID [Concomitant]
     Indication: PRODUCT USED FOR UNKNOWN INDICATION
  4. PANTOPRAZOLE [Concomitant]
     Indication: PRODUCT USED FOR UNKNOWN INDICATION
  5. BISOPROLOL [Concomitant]
     Indication: PRODUCT USED FOR UNKNOWN INDICATION
  6. BETAHISTINE [Concomitant]
     Indication: PRODUCT USED FOR UNKNOWN INDICATION
  7. SALBUTAMOL [Concomitant]
     Indication: PRODUCT USED FOR UNKNOWN INDICATION
  8. SYMBICORT [Concomitant]
     Indication: PRODUCT USED FOR UNKNOWN INDICATION
     Dosage: Formoterol, Fumaraat 4.5mg + Budesonide 160mg
  9. MONTELUKAST [Concomitant]
     Indication: PRODUCT USED FOR UNKNOWN INDICATION
  10. LEVOCETIRIZINE [Concomitant]
     Indication: PRODUCT USED FOR UNKNOWN INDICATION
  11. HUMIRA 40 MG/ 0.8 ML PRE-FILLED SYRINGE [Suspect]
     Indication: ANKYLOSING SPONDYLITIS
     Dosage: Put on hold several times since therapy start
     Dates: start: 20110729, end: 20120601

REACTIONS (7)
  - Thyroid cancer metastatic [Unknown]
  - Peritonsillar abscess [Unknown]
  - Blood calcium increased [Unknown]
  - Arthritis [Unknown]
  - Upper respiratory tract infection [Unknown]
  - Hypocalcaemia [Unknown]
  - Nausea [Unknown]
